FAERS Safety Report 8264619-2 (Version None)
Quarter: 2012Q2

REPORT INFORMATION
  Report Type: 
  Country: None (occurrence: None)
  Receive Date: 20120404
  Receipt Date: 20120402
  Transmission Date: 20120825
  Serious: Yes (Death)
  Sender: FDA-Public Use
  Company Number: ADR-2011-10590

PATIENT
  Age: 79 Year
  Sex: Male

DRUGS (3)
  1. LIORESAL [Suspect]
     Indication: MUSCLE SPASTICITY
     Dosage: 65.98 MCG, DAILY, INTRATHECAL
     Route: 037
  2. BUPIVACAINE HCL [Concomitant]
  3. DILAUDID [Concomitant]

REACTIONS (2)
  - METASTATIC NEOPLASM [None]
  - CONDITION AGGRAVATED [None]
